FAERS Safety Report 4461695-X (Version None)
Quarter: 2004Q3

REPORT INFORMATION
  Report Type: 
  Country: None (occurrence: None)
  Receive Date: 20040924
  Receipt Date: 20040924
  Transmission Date: 20050211
  Serious: Yes (Life-Threatening, Hospitalization)
  Sender: FDA-Public Use
  Company Number: None

PATIENT
  Age: 82 Year
  Sex: Female
  Weight: 74 kg

DRUGS (6)
  1. CARIMUNE [Suspect]
     Indication: IDIOPATHIC THROMBOCYTOPENIC PURPURA
     Dosage: 40 GM X 2 DOSES IV
     Route: 042
     Dates: start: 20040914, end: 20040915
  2. ZANTAC [Concomitant]
  3. INSULIN [Concomitant]
  4. SOLU-CORTEF [Concomitant]
  5. FUROSEMIDE [Concomitant]
  6. METOPROLOL [Concomitant]

REACTIONS (1)
  - BLOOD CREATININE INCREASED [None]
